FAERS Safety Report 26182671 (Version 1)
Quarter: 2025Q4

REPORT INFORMATION
  Report Type: Report from Study
  Country: US (occurrence: US)
  Receive Date: 20251221
  Receipt Date: 20251221
  Transmission Date: 20260118
  Serious: Yes (Hospitalization, Other)
  Sender: ABBVIE
  Company Number: US-ABBVIE-6587909

PATIENT
  Age: 78 Year
  Sex: Female

DRUGS (2)
  1. RINVOQ [Suspect]
     Active Substance: UPADACITINIB
     Indication: Giant cell arteritis
     Route: 048
     Dates: start: 20250616, end: 2025
  2. RINVOQ [Suspect]
     Active Substance: UPADACITINIB
     Indication: Giant cell arteritis
     Route: 048
     Dates: start: 20250714

REACTIONS (2)
  - Diverticulitis intestinal perforated [Recovering/Resolving]
  - Haemorrhagic cyst [Not Recovered/Not Resolved]

NARRATIVE: CASE EVENT DATE: 20251001
